FAERS Safety Report 8777351 (Version 1)
Quarter: 2012Q4

REPORT INFORMATION
  Report Type: 
  Country: US (occurrence: US)
  Receive Date: 20120911
  Receipt Date: 20120911
  Transmission Date: 20130627
  Serious: Yes (Hospitalization)
  Sender: FDA-Public Use
  Company Number: US-PFIZER INC-2012220878

PATIENT
  Age: 47 Year
  Sex: Male
  Weight: 98.87 kg

DRUGS (3)
  1. LYRICA [Suspect]
     Indication: NEUROPATHY PERIPHERAL
     Dosage: 75 mg, 2x/day
     Route: 048
  2. GLUCOTROL [Suspect]
     Indication: DIABETES MELLITUS
     Dosage: UNK
  3. JANUMET [Concomitant]
     Indication: DIABETES MELLITUS
     Dosage: UNK

REACTIONS (3)
  - Blister [Recovered/Resolved]
  - Localised infection [Recovered/Resolved]
  - Blood glucose increased [Unknown]
